FAERS Safety Report 16174853 (Version 1)
Quarter: 2019Q2

REPORT INFORMATION
  Report Type: Spontaneous
  Country: BE (occurrence: BE)
  Receive Date: 20190409
  Receipt Date: 20190409
  Transmission Date: 20190711
  Serious: Yes (Death)
  Sender: FDA-Public Use
  Company Number: BE-AMREGENT-20190649

PATIENT
  Age: 70 Year
  Sex: Male
  Weight: 77 kg

DRUGS (1)
  1. FERINJECT [Suspect]
     Active Substance: FERRIC CARBOXYMALTOSE
     Dosage: 4 ML IN 100 ML NACL (200 MG)
     Route: 041
     Dates: start: 20171025, end: 20171030

REACTIONS (1)
  - Candida infection [Fatal]

NARRATIVE: CASE EVENT DATE: 20171113
